FAERS Safety Report 4431636-X (Version None)
Quarter: 2004Q3

REPORT INFORMATION
  Report Type: 
  Country: None (occurrence: None)
  Receive Date: 20040721
  Receipt Date: 20040122
  Transmission Date: 20050211
  Serious: Yes (Hospitalization)
  Sender: FDA-Public Use
  Company Number: WAES 0401USA01915

PATIENT
  Age: 69 Year
  Sex: Female
  Weight: 96.1626 kg

DRUGS (14)
  1. VIOXX [Suspect]
     Indication: OSTEOARTHRITIS
     Dosage: 25 MG/DAILY/PO
     Route: 048
     Dates: start: 20030715, end: 20031230
  2. AZMACORT [Concomitant]
  3. DARVOCET-N 100 [Concomitant]
  4. FOSAMAX [Concomitant]
  5. KLONOPIN [Concomitant]
  6. LEVOXYL [Concomitant]
  7. SINGULAIR [Concomitant]
  8. VOLMAX [Concomitant]
  9. XANAX [Concomitant]
  10. ZOLOFT [Concomitant]
  11. CYCLOPHOSPHAMIDE [Concomitant]
  12. FAMOTIDINE [Concomitant]
  13. TAMOXIFEN CITRATE [Concomitant]
  14. TRIAMTERENE [Concomitant]

REACTIONS (2)
  - CARDIAC MURMUR [None]
  - GASTROINTESTINAL HAEMORRHAGE [None]
